FAERS Safety Report 16224844 (Version 3)
Quarter: 2019Q2

REPORT INFORMATION
  Report Type: Report from Study
  Country: US (occurrence: US)
  Receive Date: 20190422
  Receipt Date: 20190611
  Transmission Date: 20190711
  Serious: Yes (Other)
  Sender: FDA-Public Use
  Company Number: US-PFIZER INC-2019005573

PATIENT
  Age: 53 Year
  Sex: Female

DRUGS (2)
  1. FEMARA [Suspect]
     Active Substance: LETROZOLE
     Indication: BREAST CANCER FEMALE
     Dosage: UNK, DAILY
     Route: 048
  2. IBRANCE [Suspect]
     Active Substance: PALBOCICLIB
     Indication: BREAST CANCER FEMALE
     Dosage: 125 MG, CYCLIC (DAILY, 21 DAYS ON/7 DAYS OFF)
     Route: 048
     Dates: start: 20181217

REACTIONS (7)
  - Leukopenia [Unknown]
  - Joint stiffness [Not Recovered/Not Resolved]
  - Fatigue [Unknown]
  - Hot flush [Recovering/Resolving]
  - Dyspepsia [Recovered/Resolved]
  - Bone marrow failure [Unknown]
  - Chest pain [Unknown]

NARRATIVE: CASE EVENT DATE: 2018
